FAERS Safety Report 10874451 (Version 2)
Quarter: 2015Q1

REPORT INFORMATION
  Report Type: Spontaneous
  Country: DE (occurrence: DE)
  Receive Date: 20150227
  Receipt Date: 20150330
  Transmission Date: 20150721
  Serious: Yes (Death, Other)
  Sender: FDA-Public Use
  Company Number: DE-BAYER-2015-004130

PATIENT
  Age: 75 Year
  Sex: Female

DRUGS (2)
  1. SORAFENIB (RAF KINASE INHIBITOR) [Suspect]
     Active Substance: SORAFENIB
     Indication: ACUTE MYELOID LEUKAEMIA
     Dosage: 200 MG, BID
     Route: 048
     Dates: start: 20140125, end: 20140127
  2. LITALIR [Concomitant]
     Active Substance: HYDROXYUREA
     Dosage: 500 MG, BID
     Route: 048
     Dates: start: 20140121, end: 20140124

REACTIONS (8)
  - Bradyarrhythmia [Fatal]
  - Tumour lysis syndrome [None]
  - C-reactive protein increased [None]
  - Hyperuricaemia [None]
  - Acute kidney injury [None]
  - Product use issue [None]
  - Cardiovascular insufficiency [Fatal]
  - White blood cell count decreased [None]

NARRATIVE: CASE EVENT DATE: 20140127
